FAERS Safety Report 16367350 (Version 9)
Quarter: 2020Q4

REPORT INFORMATION
  Report Type: Spontaneous
  Country: US (occurrence: US)
  Receive Date: 20190529
  Receipt Date: 20201006
  Transmission Date: 20210113
  Serious: No
  Sender: FDA-Public Use
  Company Number: US-PFIZER INC-2019228406

PATIENT
  Age: 53 Year
  Sex: Female
  Weight: 76 kg

DRUGS (9)
  1. LYRICA [Suspect]
     Active Substance: PREGABALIN
     Indication: FIBROMYALGIA
     Dosage: 75 MG, 1X/DAY (NIGHT)
     Route: 048
  2. HYDROCODONE [Concomitant]
     Active Substance: HYDROCODONE
     Indication: PAIN
     Dosage: 5 MG, 1X/DAY (NIGHT)
  3. LYRICA [Suspect]
     Active Substance: PREGABALIN
     Indication: NEUROPATHY PERIPHERAL
     Dosage: 75 MG, 2X/DAY
  4. LYRICA [Suspect]
     Active Substance: PREGABALIN
     Indication: RHEUMATOID ARTHRITIS
     Dosage: UNK, 2X/DAY (SHE HAS BEEN TAKING 2 AT NIGHT)
  5. LYRICA [Suspect]
     Active Substance: PREGABALIN
     Indication: INFLAMMATION
  6. METHOCARBAMOL. [Concomitant]
     Active Substance: METHOCARBAMOL
     Dosage: 750 MG, 1X/DAY
  7. HUMIRA [Concomitant]
     Active Substance: ADALIMUMAB
     Indication: RHEUMATOID ARTHRITIS
     Dosage: 40 MG (ONE EVERY TWO WEEKS)
  8. METHOCARBAMOL. [Concomitant]
     Active Substance: METHOCARBAMOL
     Indication: PAIN
     Dosage: UNK, 1X/DAY  (1 TO HALF TABLET )
     Dates: start: 2012
  9. METHOCARBAMOL. [Concomitant]
     Active Substance: METHOCARBAMOL
     Dosage: 500 MG, 1X/DAY (AT NIGHT)

REACTIONS (13)
  - Weight increased [Unknown]
  - Fatigue [Unknown]
  - Loss of personal independence in daily activities [Unknown]
  - Confusional state [Unknown]
  - Condition aggravated [Not Recovered/Not Resolved]
  - Sleep disorder [Unknown]
  - Somnolence [Unknown]
  - Stress [Unknown]
  - Therapeutic product effect incomplete [Unknown]
  - Memory impairment [Unknown]
  - Anxiety [Not Recovered/Not Resolved]
  - Feeling abnormal [Unknown]
  - Intentional product use issue [Unknown]

NARRATIVE: CASE EVENT DATE: 20190425
